FAERS Safety Report 9729811 (Version 3)
Quarter: 2015Q3

REPORT INFORMATION
  Report Type: Spontaneous
  Country: US (occurrence: US)
  Receive Date: 20131204
  Receipt Date: 20150804
  Transmission Date: 20151125
  Serious: No
  Sender: FDA-Public Use
  Company Number: US-GILEAD-2009-0021772

PATIENT
  Age: 70 Year
  Sex: Female
  Weight: 77.11 kg

DRUGS (14)
  1. COMPLETE MULTIVITAMIN [Concomitant]
     Active Substance: VITAMINS
  2. XANAX XR [Concomitant]
     Active Substance: ALPRAZOLAM
  3. FLAXSEED [Concomitant]
     Active Substance: FLAX SEED
  4. LEVOXYL [Concomitant]
     Active Substance: LEVOTHYROXINE SODIUM
  5. ASPIRIN. [Concomitant]
     Active Substance: ASPIRIN
  6. NEXIUM [Concomitant]
     Active Substance: ESOMEPRAZOLE MAGNESIUM
  7. LETAIRIS [Suspect]
     Active Substance: AMBRISENTAN
     Indication: PULMONARY ARTERIAL HYPERTENSION
     Route: 048
     Dates: start: 20090112
  8. TOPROL XL [Concomitant]
     Active Substance: METOPROLOL SUCCINATE
  9. VITAMIN C [Concomitant]
     Active Substance: ASCORBIC ACID
  10. CYMBALTA [Concomitant]
     Active Substance: DULOXETINE HYDROCHLORIDE
  11. NORVASC [Concomitant]
     Active Substance: AMLODIPINE BESYLATE
  12. WELCHOL [Concomitant]
     Active Substance: COLESEVELAM HYDROCHLORIDE
  13. SYNVISC [Concomitant]
     Active Substance: HYALURONATE SODIUM
  14. CALCIUM [Concomitant]
     Active Substance: CALCIUM

REACTIONS (1)
  - Unevaluable event [Unknown]
